FAERS Safety Report 8911194 (Version 1)
Quarter: 2012Q4

REPORT INFORMATION
  Report Type: 
  Country: US (occurrence: US)
  Receive Date: 20121115
  Receipt Date: 20121115
  Transmission Date: 20130627
  Serious: No
  Sender: FDA-Public Use
  Company Number: US-AMGEN-USASP2012050664

PATIENT
  Age: 47 Year
  Sex: Male
  Weight: 71.2 kg

DRUGS (12)
  1. VECTIBIX [Suspect]
     Indication: COLON CANCER STAGE III
     Dosage: 400 mg, q2wk
     Route: 042
     Dates: start: 20120614, end: 20120810
  2. IRINOTECAN [Concomitant]
     Dosage: UNK
  3. 5-FLUOROURACIL [Concomitant]
     Indication: COLON CANCER
     Dosage: 760 mg, q2wk
     Route: 042
     Dates: start: 20120509, end: 20120810
  4. 5-FLUOROURACIL [Concomitant]
     Dosage: 456 mg, q2wk
     Route: 042
     Dates: start: 20120509, end: 20120810
  5. LEUCOVORIN [Concomitant]
     Indication: COLON CANCER
     Dosage: 760 mg, q2wk
     Route: 042
     Dates: start: 20120509, end: 20120810
  6. EMEND                              /01627301/ [Concomitant]
     Indication: NAUSEA
     Dosage: 150 mg, q2wk
     Route: 042
     Dates: start: 20120509, end: 20120810
  7. EMEND                              /01627301/ [Concomitant]
     Indication: VOMITING
  8. CAMPTOSAR [Concomitant]
     Indication: COLON CANCER
     Dosage: 340 mg, q2wk
     Route: 042
     Dates: start: 20120509, end: 20120810
  9. LEXAPRO [Concomitant]
     Dosage: 20 mg, qd
  10. PRAVASTATIN [Concomitant]
     Dosage: 40 mg, qd
  11. LISINOPRIL [Concomitant]
     Dosage: 5 mg, qd
  12. DEXAMETHASONE                      /00016002/ [Concomitant]
     Dosage: 4 mg, per chemo regim

REACTIONS (2)
  - Malaise [Unknown]
  - Emotional distress [Not Recovered/Not Resolved]
